FAERS Safety Report 4405831-X (Version None)
Quarter: 2004Q3

REPORT INFORMATION
  Report Type: 
  Country: None (occurrence: None)
  Receive Date: 20040723
  Receipt Date: 20040102
  Transmission Date: 20050211
  Serious: Yes (Hospitalization)
  Sender: FDA-Public Use
  Company Number: US-GLAXOSMITHKLINE-A0491573A

PATIENT
  Age: 42 Year
  Sex: Male
  Weight: 131.4 kg

DRUGS (12)
  1. AVANDIA [Suspect]
     Dosage: 8MG PER DAY
     Route: 048
     Dates: start: 20000414, end: 20020410
  2. VASOTEC [Concomitant]
  3. ASPIRIN [Concomitant]
  4. CARDIZEM [Concomitant]
  5. LIPITOR [Concomitant]
  6. INSULIN [Concomitant]
  7. GLUCOPHAGE [Concomitant]
  8. LASIX [Concomitant]
  9. LOPRESSOR [Concomitant]
  10. XANAX [Concomitant]
  11. ZAROXOLYN [Concomitant]
  12. PROZAC [Concomitant]

REACTIONS (1)
  - CARDIAC FAILURE CONGESTIVE [None]
